FAERS Safety Report 18491667 (Version 4)
Quarter: 2021Q2

REPORT INFORMATION
  Report Type: Report from Study
  Country: US (occurrence: US)
  Receive Date: 20201111
  Receipt Date: 20210426
  Transmission Date: 20210717
  Serious: No
  Sender: FDA-Public Use
  Company Number: NVSC2020US299876

PATIENT
  Sex: Female

DRUGS (1)
  1. ENTRESTO [Suspect]
     Active Substance: SACUBITRIL\VALSARTAN
     Indication: CARDIAC FAILURE
     Dosage: 100 MG (49/51), BID
     Route: 048
     Dates: start: 20200821

REACTIONS (9)
  - Fall [Unknown]
  - Haematoma [Unknown]
  - Asthenia [Not Recovered/Not Resolved]
  - Blood pressure decreased [Unknown]
  - Dizziness [Unknown]
  - Nausea [Recovering/Resolving]
  - Joint injury [Unknown]
  - Blood glucose increased [Unknown]
  - Fatigue [Not Recovered/Not Resolved]
